FAERS Safety Report 19998210 (Version 1)
Quarter: 2021Q4

REPORT INFORMATION
  Report Type: Spontaneous
  Country: US (occurrence: US)
  Receive Date: 20211026
  Receipt Date: 20211026
  Transmission Date: 20220303
  Serious: Yes (Other)
  Sender: FDA-Public Use
  Company Number: US-PFIZER INC-202101391392

PATIENT
  Age: 5 Decade
  Sex: Female

DRUGS (1)
  1. DOXEPIN HYDROCHLORIDE [Suspect]
     Active Substance: DOXEPIN HYDROCHLORIDE
     Dosage: UNK

REACTIONS (2)
  - Hallucination [Unknown]
  - Drug ineffective [Unknown]
